FAERS Safety Report 8918107 (Version 1)
Quarter: 2012Q4

REPORT INFORMATION
  Report Type: 
  Country: US (occurrence: US)
  Receive Date: 20121120
  Receipt Date: 20121120
  Transmission Date: 20130627
  Serious: Yes (Hospitalization, Disabling, Other)
  Sender: FDA-Public Use
  Company Number: US-009507513-1107USA03830

PATIENT

DRUGS (8)
  1. FOSAMAX [Suspect]
     Indication: OSTEOPENIA
     Dosage: 10 mg, UNK
     Route: 048
     Dates: start: 199510, end: 200008
  2. FOSAMAX [Suspect]
     Indication: OSTEOPOROSIS
     Dates: end: 2009
  3. HORMONES (UNSPECIFIED) [Concomitant]
     Route: 048
     Dates: start: 1970, end: 2010
  4. KLONOPIN [Concomitant]
     Indication: PAIN
     Route: 048
     Dates: start: 1989
  5. ACTONEL [Suspect]
     Indication: OSTEOPENIA
     Dosage: 5 mg, UNK
     Route: 048
     Dates: start: 200104, end: 200702
  6. ACTONEL [Suspect]
     Dosage: 35 mg, UNK
     Route: 048
     Dates: start: 200702, end: 201004
  7. OXYCONTIN [Concomitant]
     Indication: PAIN
     Route: 048
     Dates: start: 1989, end: 2010
  8. OXYCODONE [Concomitant]
     Indication: PAIN
     Route: 048
     Dates: start: 1989, end: 2010

REACTIONS (115)
  - Wrist fracture [Unknown]
  - Breast disorder [Unknown]
  - Osteoarthritis [Unknown]
  - Humerus fracture [Unknown]
  - Arthropathy [Unknown]
  - Joint dislocation [Unknown]
  - Back disorder [Unknown]
  - Soft tissue disorder [Unknown]
  - Radius fracture [Unknown]
  - Tendon rupture [Unknown]
  - Neurogenic bladder [Unknown]
  - Intervertebral disc disorder [Unknown]
  - Hypersensitivity [Unknown]
  - Osteonecrosis of jaw [Not Recovered/Not Resolved]
  - Exostosis of jaw [Unknown]
  - Temporomandibular joint syndrome [Unknown]
  - Oral infection [Unknown]
  - Road traffic accident [Unknown]
  - Tooth fracture [Not Recovered/Not Resolved]
  - Blepharospasm [Recovered/Resolved]
  - Road traffic accident [Unknown]
  - Visual impairment [Unknown]
  - Type 2 diabetes mellitus [Unknown]
  - Meniscus injury [Unknown]
  - Arthropathy [Unknown]
  - Muscle strain [Unknown]
  - Myofascial pain syndrome [Unknown]
  - Viral infection [Unknown]
  - Tooth infection [Unknown]
  - Sinusitis [Unknown]
  - Large intestine polyp [Unknown]
  - Impaired gastric emptying [Unknown]
  - Urinary retention [Unknown]
  - Dyslipidaemia [Unknown]
  - Dry mouth [Unknown]
  - Anxiety [Unknown]
  - Bruxism [Unknown]
  - Tooth disorder [Unknown]
  - Jaw disorder [Unknown]
  - Fall [Unknown]
  - Gingival bleeding [Unknown]
  - Gingival bleeding [Unknown]
  - Excoriation [Unknown]
  - Ligament sprain [Unknown]
  - Weight decreased [Unknown]
  - Urinary tract infection [Unknown]
  - Fall [Unknown]
  - Contusion [Unknown]
  - Depressed level of consciousness [Unknown]
  - Fall [Unknown]
  - Breast discharge [Unknown]
  - Breast discharge [Unknown]
  - Night sweats [Unknown]
  - Photophobia [Unknown]
  - Asbestosis [Unknown]
  - Skin disorder [Unknown]
  - Hot flush [Unknown]
  - Calcinosis [Unknown]
  - Rotator cuff syndrome [Unknown]
  - Menopausal symptoms [Unknown]
  - Fall [Unknown]
  - Contusion [Unknown]
  - Fall [Unknown]
  - Muscle disorder [Unknown]
  - Facial bones fracture [Unknown]
  - Head injury [Unknown]
  - Diplopia [Recovered/Resolved]
  - Diabetic neuropathy [Unknown]
  - Osteoarthritis [Unknown]
  - Exostosis [Unknown]
  - Tooth disorder [Not Recovered/Not Resolved]
  - Tooth disorder [Unknown]
  - Hypertonic bladder [Unknown]
  - Depression [Unknown]
  - Sleep disorder [Unknown]
  - Lymphadenopathy [Unknown]
  - Dental caries [Unknown]
  - Osteitis [Unknown]
  - Road traffic accident [Unknown]
  - Fall [Unknown]
  - Impaired healing [Unknown]
  - Cubital tunnel syndrome [Unknown]
  - Carpal tunnel syndrome [Unknown]
  - Osteoarthritis [Unknown]
  - Fall [Unknown]
  - Contusion [Unknown]
  - Waardenburg syndrome [Unknown]
  - Foot fracture [Unknown]
  - Limb injury [Unknown]
  - Hyperlipidaemia [Unknown]
  - Autoimmune thyroiditis [Unknown]
  - Rhinitis allergic [Unknown]
  - Candidiasis [Unknown]
  - Fall [Unknown]
  - Clubbing [Unknown]
  - Craniocerebral injury [Unknown]
  - Arthropathy [Unknown]
  - Tinnitus [Unknown]
  - Ligament disorder [Unknown]
  - Erythema [Unknown]
  - Headache [Recovered/Resolved]
  - Gastrointestinal tract irritation [Unknown]
  - Dyspepsia [Unknown]
  - Nausea [Unknown]
  - Constipation [Unknown]
  - Gastrooesophageal reflux disease [Unknown]
  - Musculoskeletal chest pain [Unknown]
  - Drug hypersensitivity [Unknown]
  - Drug hypersensitivity [Unknown]
  - Drug hypersensitivity [Unknown]
  - Drug hypersensitivity [Unknown]
  - Drug hypersensitivity [Unknown]
  - Arthralgia [Unknown]
  - Vertigo [Unknown]
  - Vomiting [Unknown]
